FAERS Safety Report 4662642-8 (Version None)
Quarter: 2005Q2

REPORT INFORMATION
  Report Type: 
  Country: None (occurrence: None)
  Receive Date: 20050513
  Receipt Date: 20050513
  Transmission Date: 20051028
  Serious: Yes (Life-Threatening, Hospitalization)
  Sender: FDA-Public Use
  Company Number: None

PATIENT
  Age: 18 Year
  Sex: Male
  Weight: 130.72 kg

DRUGS (4)
  1. ADDERALL XR 20 [Suspect]
     Dosage: 20MG   BID   ORAL
     Route: 048
  2. EFFEXOR XR [Concomitant]
  3. TOPAMAX [Concomitant]
  4. CELEXA [Concomitant]

REACTIONS (7)
  - ACUTE MYOCARDIAL INFARCTION [None]
  - ARTERIOSPASM CORONARY [None]
  - BACK PAIN [None]
  - CORONARY ARTERY DISEASE [None]
  - HEADACHE [None]
  - MUSCULOSKELETAL STIFFNESS [None]
  - PYREXIA [None]
